FAERS Safety Report 19254060 (Version 3)
Quarter: 2021Q4

REPORT INFORMATION
  Report Type: Other
  Country: US (occurrence: US)
  Receive Date: 20210513
  Receipt Date: 20211015
  Transmission Date: 20220303
  Serious: No
  Sender: FDA-Public Use
  Company Number: US-NEUROCRINE BIOSCIENCES INC.-2021NBI02219

PATIENT

DRUGS (7)
  1. INGREZZA [Suspect]
     Active Substance: VALBENAZINE
     Indication: Tardive dyskinesia
     Dosage: 80 MILLIGRAM DAILY
     Route: 048
     Dates: start: 20210402, end: 202104
  2. INGREZZA [Suspect]
     Active Substance: VALBENAZINE
     Dosage: 40 MILLIGRAM DAILY
     Route: 048
     Dates: start: 20210409, end: 20210824
  3. QUETIAPINE [Concomitant]
     Active Substance: QUETIAPINE
     Indication: Schizophrenia
     Dosage: 500 MILLIGRAM IN EVENING
     Route: 048
  4. CLONAZEPAM [Concomitant]
     Active Substance: CLONAZEPAM
     Indication: Anxiety
     Dosage: 0.5 MILLIGRAM AT BEDTIME
     Route: 048
  5. LAMOTRIGINE [Concomitant]
     Active Substance: LAMOTRIGINE
     Indication: Bipolar disorder
     Dosage: 100 MG/25MG,EVENING/BEDTIME
     Route: 048
  6. PAROXETINE [Concomitant]
     Active Substance: PAROXETINE
     Dosage: 20 MILLIGRAM, QD
  7. ARISTADA INITIO [Concomitant]
     Active Substance: ARIPIPRAZOLE LAUROXIL
     Dosage: 441(UNIT UNSPECIFIED(QMONTHTLY

REACTIONS (6)
  - Speech disorder [Recovered/Resolved]
  - Dysarthria [Recovered/Resolved]
  - Lethargy [Recovered/Resolved]
  - Loss of personal independence in daily activities [Recovered/Resolved]
  - Somnolence [Recovered/Resolved]
  - Balance disorder [Recovered/Resolved]

NARRATIVE: CASE EVENT DATE: 20210101
